FAERS Safety Report 9671699 (Version 1)
Quarter: 2013Q4

REPORT INFORMATION
  Report Type: Spontaneous
  Country: IN (occurrence: None)
  Receive Date: 20131104
  Receipt Date: 20131104
  Transmission Date: 20140711
  Serious: Yes (Other)
  Sender: FDA-Public Use
  Company Number: CIP-2013-00195

PATIENT
  Age: 53 Year
  Sex: Female
  Weight: 57 kg

DRUGS (2)
  1. CARBOPLATIN [Suspect]
     Indication: OVARIAN CANCER
     Dosage: 200MG, 200 ML OVER ONE HOUR, INTRAVENOUS (NOT OTHERWISE SPECIFIED)
     Route: 042
     Dates: start: 20131016, end: 20131016
  2. PACILTAXEL [Concomitant]

REACTIONS (2)
  - Dyspnoea [None]
  - Pruritus [None]
